FAERS Safety Report 21021902 (Version 1)
Quarter: 2022Q2

REPORT INFORMATION
  Report Type: Spontaneous
  Country: US (occurrence: None)
  Receive Date: 20220628
  Receipt Date: 20220628
  Transmission Date: 20220720
  Serious: Yes (Hospitalization)
  Sender: FDA-Public Use
  Company Number: None

PATIENT
  Age: 57 Year
  Sex: Male

DRUGS (1)
  1. COSENTYX [Suspect]
     Active Substance: SECUKINUMAB
     Indication: Psoriasis
     Route: 058
     Dates: start: 20191122, end: 20220201

REACTIONS (6)
  - Dizziness [None]
  - Bundle branch block left [None]
  - Therapy cessation [None]
  - Psoriasis [None]
  - Psoriatic arthropathy [None]
  - Disease recurrence [None]

NARRATIVE: CASE EVENT DATE: 20220201
